FAERS Safety Report 20540778 (Version 2)
Quarter: 2024Q1

REPORT INFORMATION
  Report Type: Spontaneous
  Country: US (occurrence: US)
  Receive Date: 20220302
  Receipt Date: 20240313
  Transmission Date: 20240410
  Serious: Yes (Other)
  Sender: FDA-Public Use
  Company Number: US-JNJFOC-20211039636

PATIENT
  Age: 65 Year
  Sex: Female

DRUGS (2)
  1. ELMIRON [Suspect]
     Active Substance: PENTOSAN POLYSULFATE SODIUM
     Indication: Cystitis interstitial
     Dosage: 2-3 CAPSULES PER DAY
     Route: 048
     Dates: start: 2005, end: 2006
  2. ELMIRON [Suspect]
     Active Substance: PENTOSAN POLYSULFATE SODIUM
     Dosage: 2-3 CAPSULES PER DAY
     Route: 048
     Dates: start: 20071218, end: 2008

REACTIONS (5)
  - Dry age-related macular degeneration [Not Recovered/Not Resolved]
  - Vitreous detachment [Unknown]
  - Retinal dystrophy [Unknown]
  - Maculopathy [Unknown]
  - Dry eye [Unknown]

NARRATIVE: CASE EVENT DATE: 20180518
